FAERS Safety Report 7927624-9 (Version None)
Quarter: 2011Q4

REPORT INFORMATION
  Report Type: 
  Country: None (occurrence: None)
  Receive Date: 20111118
  Receipt Date: 20110818
  Transmission Date: 20120403
  Serious: No
  Sender: FDA-Public Use
  Company Number: US-BAYER-2011-078938

PATIENT
  Age: 61 Year
  Sex: Male
  Weight: 110 kg

DRUGS (8)
  1. ALEVE (CAPLET) [Suspect]
     Dosage: UNK
     Route: 048
     Dates: start: 20110818, end: 20110818
  2. METFORMIN HCL [Concomitant]
  3. BENAZEPRIL HYDROCHLORIDE [Concomitant]
  4. NIASPAN [Concomitant]
  5. AMLODIPINE [Concomitant]
  6. CARVEDILOL [Concomitant]
  7. RANITIDINE [Concomitant]
  8. SIMVASTATIN [Concomitant]

REACTIONS (1)
  - NO ADVERSE EVENT [None]
